FAERS Safety Report 21694448 (Version 2)
Quarter: 2024Q4

REPORT INFORMATION
  Report Type: Spontaneous
  Country: US (occurrence: US)
  Receive Date: 20221207
  Receipt Date: 20241206
  Transmission Date: 20250114
  Serious: No
  Sender: NOVO NORDISK
  Company Number: US-NOVOPROD-965514

PATIENT
  Sex: Male

DRUGS (1)
  1. NOVOLIN N [Suspect]
     Active Substance: INSULIN HUMAN
     Indication: Product used for unknown indication
     Dosage: 25 UNITS AM AND 30 UNITS PM
     Route: 058

REACTIONS (4)
  - Dizziness [Recovered/Resolved]
  - Injection site bruising [Recovered/Resolved]
  - Product odour abnormal [Not Recovered/Not Resolved]
  - Product storage error [Recovered/Resolved]
